FAERS Safety Report 4638412-3 (Version None)
Quarter: 2005Q2

REPORT INFORMATION
  Report Type: 
  Country: None (occurrence: None)
  Receive Date: 20050418
  Receipt Date: 20050324
  Transmission Date: 20051028
  Serious: Yes (Other)
  Sender: FDA-Public Use
  Company Number: USA050393994

PATIENT
  Age: 73 Year
  Sex: Male

DRUGS (2)
  1. GEMZAR [Suspect]
     Indication: NON-SMALL CELL LUNG CANCER
     Dosage: 200 MG/M2
     Route: 042
     Dates: start: 20050216
  2. CARBOPLATIN [Concomitant]

REACTIONS (2)
  - COOMBS TEST POSITIVE [None]
  - HAEMOLYTIC ANAEMIA [None]
